FAERS Safety Report 6064702-6 (Version None)
Quarter: 2009Q1

REPORT INFORMATION
  Report Type: 
  Country: None (occurrence: None)
  Receive Date: 20090204
  Receipt Date: 20080630
  Transmission Date: 20090719
  Serious: No
  Sender: FDA-Public Use
  Company Number: A0735376A

PATIENT
  Age: 50 Year
  Sex: Female

DRUGS (1)
  1. ARIXTRA [Suspect]
     Indication: DEEP VEIN THROMBOSIS
     Dosage: 7.5MG PER DAY
     Route: 058
     Dates: start: 20080601, end: 20080601

REACTIONS (5)
  - DISORIENTATION [None]
  - DYSPNOEA [None]
  - NAUSEA [None]
  - RASH [None]
  - URTICARIA [None]
